FAERS Safety Report 25757914 (Version 1)
Quarter: 2025Q3

REPORT INFORMATION
  Report Type: Spontaneous
  Country: EU (occurrence: EU)
  Receive Date: 20250903
  Receipt Date: 20250903
  Transmission Date: 20251020
  Serious: Yes (Other)
  Sender: NOVARTIS
  Company Number: EU-002147023-NVSC2025FR134573

PATIENT
  Age: 65 Year
  Sex: Male

DRUGS (3)
  1. GLIVEC [Suspect]
     Active Substance: IMATINIB MESYLATE
     Indication: Maxillofacial sinus neoplasm
     Dosage: 400 MG, QD (SCORED  TABLET, ONE TABLET PER DAY)
     Route: 065
     Dates: start: 202112
  2. GLIVEC [Suspect]
     Active Substance: IMATINIB MESYLATE
     Dosage: 400 MG, QD (NON-SCORED TABLET, ONE TABLET PER DAY)
     Route: 065
     Dates: start: 202507
  3. GLIVEC [Suspect]
     Active Substance: IMATINIB MESYLATE
     Dosage: 400 MG, QD (SCORED TABLET, ONE TABLET PER DAY)
     Route: 065
     Dates: start: 202508

REACTIONS (4)
  - Maxillofacial sinus neoplasm [Recovering/Resolving]
  - Recurrent cancer [Recovering/Resolving]
  - Off label use [Unknown]
  - Product physical issue [Unknown]
